FAERS Safety Report 16612082 (Version 2)
Quarter: 2019Q3

REPORT INFORMATION
  Report Type: Report from Study
  Country: AR (occurrence: AR)
  Receive Date: 20190722
  Receipt Date: 20190806
  Transmission Date: 20191004
  Serious: Yes (Hospitalization)
  Sender: FDA-Public Use
  Company Number: PHHY2019AR167067

PATIENT
  Sex: Female

DRUGS (1)
  1. COSENTYX [Suspect]
     Active Substance: SECUKINUMAB
     Indication: PSORIASIS
     Dosage: 300 MG, UNK
     Route: 065
     Dates: start: 20171229

REACTIONS (3)
  - Vaginal abscess [Unknown]
  - Psoriasis [Not Recovered/Not Resolved]
  - Weight increased [Unknown]
